FAERS Safety Report 23567902 (Version 1)
Quarter: 2024Q1

REPORT INFORMATION
  Report Type: Spontaneous
  Country: US (occurrence: US)
  Receive Date: 20240226
  Receipt Date: 20240226
  Transmission Date: 20240409
  Serious: No
  Sender: FDA-Public Use
  Company Number: US-SA-SAC20240220000198

PATIENT
  Age: 61 Year
  Sex: Female

DRUGS (7)
  1. DUPIXENT [Suspect]
     Active Substance: DUPILUMAB
     Indication: Eosinophilic oesophagitis
     Dosage: UNK
     Route: 058
     Dates: start: 20221111
  2. TRAZODONE [Concomitant]
     Active Substance: TRAZODONE HYDROCHLORIDE
  3. CYCLOBENZAPRINE [Concomitant]
     Active Substance: CYCLOBENZAPRINE
  4. PROGESTERONE [Concomitant]
     Active Substance: PROGESTERONE
  5. LEVOTHYROXINE [Concomitant]
     Active Substance: LEVOTHYROXINE\LEVOTHYROXINE SODIUM
  6. LIOTHYRONINE [Concomitant]
     Active Substance: LIOTHYRONINE
  7. TRULANCE [Concomitant]
     Active Substance: PLECANATIDE

REACTIONS (4)
  - Irritability [Unknown]
  - Anxiety [Unknown]
  - Affective disorder [Unknown]
  - Off label use [Unknown]
